FAERS Safety Report 16417819 (Version 1)
Quarter: 2019Q2

REPORT INFORMATION
  Report Type: Spontaneous
  Country: US (occurrence: US)
  Receive Date: 20190611
  Receipt Date: 20190611
  Transmission Date: 20190711
  Serious: No
  Sender: FDA-Public Use
  Company Number: US-009507513-1906USA001578

PATIENT
  Age: 22 Year
  Sex: Female
  Weight: 45.35 kg

DRUGS (1)
  1. NEXPLANON [Suspect]
     Active Substance: ETONOGESTREL
     Indication: CONTRACEPTION
     Dosage: DOSE/FREQUENCY: ONE EVERY THREE YEARS
     Route: 059
     Dates: start: 2017, end: 20190508

REACTIONS (5)
  - Neuralgia [Not Recovered/Not Resolved]
  - Nerve injury [Unknown]
  - Contusion [Not Recovered/Not Resolved]
  - Paraesthesia [Unknown]
  - Adhesion [Unknown]

NARRATIVE: CASE EVENT DATE: 20190518
